FAERS Safety Report 11743471 (Version 1)
Quarter: 2015Q4

REPORT INFORMATION
  Report Type: Spontaneous
  Country: US (occurrence: US)
  Receive Date: 20151116
  Receipt Date: 20151116
  Transmission Date: 20160304
  Serious: No
  Sender: FDA-Public Use
  Company Number: US-BAYER-2015-463876

PATIENT
  Age: 38 Year
  Sex: Female

DRUGS (2)
  1. GADAVIST [Suspect]
     Active Substance: GADOBUTROL
     Indication: NUCLEAR MAGNETIC RESONANCE IMAGING
     Dosage: 6 ML, ONCE
     Route: 042
     Dates: start: 20150925, end: 20150925
  2. MAGNEVIST [Suspect]
     Active Substance: GADOPENTETATE DIMEGLUMINE
     Indication: NUCLEAR MAGNETIC RESONANCE IMAGING
     Dosage: UNK UNK, ONCE
     Dates: start: 20150917, end: 20150917

REACTIONS (3)
  - Upper-airway cough syndrome [Recovered/Resolved]
  - Rash [Recovered/Resolved]
  - Product use issue [None]

NARRATIVE: CASE EVENT DATE: 20150925
